FAERS Safety Report 13747016 (Version 3)
Quarter: 2017Q4

REPORT INFORMATION
  Report Type: Report from Study
  Country: BR (occurrence: BR)
  Receive Date: 20170712
  Receipt Date: 20171127
  Transmission Date: 20180320
  Serious: Yes (Hospitalization, Other)
  Sender: FDA-Public Use
  Company Number: BR-JNJFOC-20170704742

PATIENT
  Age: 55 Year
  Sex: Male

DRUGS (5)
  1. STELARA [Suspect]
     Active Substance: USTEKINUMAB
     Indication: PSORIASIS
     Route: 058
     Dates: start: 20170526, end: 20170526
  2. STELARA [Suspect]
     Active Substance: USTEKINUMAB
     Indication: PSORIASIS
     Route: 058
     Dates: start: 2017
  3. ACITRETIN. [Concomitant]
     Active Substance: ACITRETIN
     Route: 065
  4. SECRETIN [Concomitant]
     Active Substance: SECRETIN
     Route: 065
  5. PARACETAMOL [Concomitant]
     Active Substance: ACETAMINOPHEN
     Route: 065

REACTIONS (12)
  - Injection related reaction [Unknown]
  - Psoriasis [Unknown]
  - Blood urine present [Unknown]
  - Lung neoplasm malignant [Unknown]
  - Renal pain [Unknown]
  - Spinal pain [Unknown]
  - Hepatic pain [Unknown]
  - Catarrh [Unknown]
  - Swelling [Unknown]
  - Pyrexia [Unknown]
  - Emphysema [Unknown]
  - Jaundice [Unknown]

NARRATIVE: CASE EVENT DATE: 2017
